FAERS Safety Report 12970405 (Version 1)
Quarter: 2016Q4

REPORT INFORMATION
  Report Type: Spontaneous
  Country: ES (occurrence: ES)
  Receive Date: 20161123
  Receipt Date: 20161123
  Transmission Date: 20170207
  Serious: Yes (Other)
  Sender: FDA-Public Use
  Company Number: ES-AMGEN-ESPSP2016163846

PATIENT
  Sex: Female

DRUGS (4)
  1. NEULASTA [Suspect]
     Active Substance: PEGFILGRASTIM
     Indication: PROPHYLAXIS
     Dosage: 6 MG, GIVEN ON DAY 2 OF EVERY 3 WEEK CYCLE FOR 6 CYCLES
     Route: 058
  2. TRASTUZUMAB [Suspect]
     Active Substance: TRASTUZUMAB
     Indication: HER-2 POSITIVE BREAST CANCER
     Dosage: LOADING DOSE, DAY 1 (4 MG/KG)
     Route: 042
  3. TRASTUZUMAB [Suspect]
     Active Substance: TRASTUZUMAB
     Dosage: 2 MG/KG, QWK (GIVEN FOR 17 WEEKS)
     Route: 042
  4. MYOCET [Suspect]
     Active Substance: DOXORUBICIN
     Indication: HER-2 POSITIVE BREAST CANCER
     Dosage: 50 MG/M2, GIVEN ON DAY 1 OF EVERY 3 WEEK CYCLE FOR 6 CYCLES
     Route: 065

REACTIONS (17)
  - Diarrhoea [Unknown]
  - Liver function test abnormal [Unknown]
  - Fatigue [Unknown]
  - Myalgia [Unknown]
  - Pneumonia [Unknown]
  - Mucosal inflammation [Unknown]
  - Abdominal pain [Unknown]
  - Stomatitis [Unknown]
  - Lymphopenia [Unknown]
  - Febrile neutropenia [Unknown]
  - Asthenia [Unknown]
  - Hot flush [Unknown]
  - Thrombocytopenia [Unknown]
  - Nausea [Unknown]
  - Constipation [Unknown]
  - Leukopenia [Unknown]
  - Neutropenia [Unknown]
